FAERS Safety Report 13732936 (Version 2)
Quarter: 2017Q3

REPORT INFORMATION
  Report Type: Spontaneous
  Country: US (occurrence: US)
  Receive Date: 20170707
  Receipt Date: 20170707
  Transmission Date: 20171127
  Serious: Yes (Death, Other)
  Sender: FDA-Public Use
  Company Number: US-GE HEALTHCARE LIFE SCIENCES-VISP-PR-1610S-0617

PATIENT
  Age: 49 Year
  Sex: Male
  Weight: 92.1 kg

DRUGS (12)
  1. LIDOCAINE. [Concomitant]
     Active Substance: LIDOCAINE
     Indication: PREMEDICATION
  2. LIDOCAINE. [Concomitant]
     Active Substance: LIDOCAINE
     Indication: LOCAL ANAESTHESIA
     Dosage: ,
     Route: 023
     Dates: start: 20160517, end: 20160517
  3. NITROGLYCERINE [Concomitant]
     Active Substance: NITROGLYCERIN
     Indication: CATHETERISATION CARDIAC
     Dosage: ,
     Dates: start: 20160517, end: 20160517
  4. MIDAZOLAM [Concomitant]
     Active Substance: MIDAZOLAM HYDROCHLORIDE
     Indication: SEDATION
     Dosage: ,
     Route: 042
     Dates: start: 20160517, end: 20160517
  5. VERAPAMIL [Concomitant]
     Active Substance: VERAPAMIL HYDROCHLORIDE
     Indication: CATHETERISATION CARDIAC
     Dosage: ,
     Route: 013
     Dates: start: 20160517, end: 20160517
  6. HEPARIN [Concomitant]
     Active Substance: HEPARIN SODIUM
     Indication: PREMEDICATION
  7. FUROSEMIDE. [Concomitant]
     Active Substance: FUROSEMIDE
     Indication: CARDIAC FAILURE
     Dosage: ,
     Route: 042
     Dates: start: 20160513, end: 20160516
  8. CARVEDILOL. [Concomitant]
     Active Substance: CARVEDILOL
     Indication: CARDIAC FAILURE
     Dosage: ,
     Route: 048
     Dates: start: 20160515, end: 20160517
  9. HEPARIN [Concomitant]
     Active Substance: HEPARIN SODIUM
     Indication: ANTICOAGULANT THERAPY
     Dosage: ,
     Route: 013
     Dates: start: 20160517, end: 20160517
  10. VERAPAMIL [Concomitant]
     Active Substance: VERAPAMIL HYDROCHLORIDE
     Indication: PREMEDICATION
  11. VISIPAQUE [Suspect]
     Active Substance: IODIXANOL
     Indication: CARDIOMYOPATHY
     Dosage: 225 ML, SINGLE
     Route: 013
     Dates: start: 20160517, end: 20160517
  12. MIDAZOLAM [Concomitant]
     Active Substance: MIDAZOLAM HYDROCHLORIDE
     Indication: PREMEDICATION

REACTIONS (3)
  - Circulatory collapse [Fatal]
  - Shock [Not Recovered/Not Resolved]
  - Hypotension [Not Recovered/Not Resolved]

NARRATIVE: CASE EVENT DATE: 20160517
